FAERS Safety Report 7161943-1 (Version None)
Quarter: 2010Q4

REPORT INFORMATION
  Report Type: 
  Country: None (occurrence: None)
  Receive Date: 20101215
  Receipt Date: 20100707
  Transmission Date: 20110411
  Serious: Yes (Other)
  Sender: FDA-Public Use
  Company Number: CO-PFIZER INC-2010076888

PATIENT
  Sex: Female

DRUGS (8)
  1. LYRICA [Suspect]
     Indication: PAIN
     Dosage: 75 MG, 4X/DAY
     Route: 048
  2. LYRICA [Suspect]
     Indication: RADICULOPATHY
  3. LYRICA [Suspect]
     Indication: FIBROMYALGIA
  4. ATACAND [Concomitant]
     Indication: HYPERTENSION
     Dosage: 16 MG, 1X/DAY
  5. ELTROXIN [Concomitant]
     Indication: HYPOTHYROIDISM
     Dosage: 50 MG, UNK
  6. OMEPRAZOLE [Concomitant]
     Indication: ABDOMINAL DISCOMFORT
     Dosage: 20 MG, 2X/DAY
  7. DOLEX [Concomitant]
     Indication: PAIN
     Dosage: UNK
  8. CRESTOR [Concomitant]
     Dosage: UNK

REACTIONS (3)
  - DIZZINESS [None]
  - SOMNOLENCE [None]
  - TACHYCARDIA [None]
